FAERS Safety Report 25689203 (Version 1)
Quarter: 2025Q3

REPORT INFORMATION
  Report Type: Spontaneous
  Country: US (occurrence: US)
  Receive Date: 20250818
  Receipt Date: 20250818
  Transmission Date: 20251020
  Serious: Yes (Other)
  Sender: AUROBINDO
  Company Number: US-AUROBINDO-AUR-APL-2025-042060

PATIENT

DRUGS (1)
  1. FLECAINIDE [Suspect]
     Active Substance: FLECAINIDE
     Indication: Tachycardia foetal
     Route: 064

REACTIONS (4)
  - Toxicity to various agents [Unknown]
  - Bradycardia neonatal [Unknown]
  - Ventricular extrasystoles [Unknown]
  - Foetal exposure during pregnancy [Unknown]
